FAERS Safety Report 6696791-X (Version None)
Quarter: 2010Q2

REPORT INFORMATION
  Report Type: 
  Country: None (occurrence: None)
  Receive Date: 20100421
  Receipt Date: 20100119
  Transmission Date: 20101027
  Serious: No
  Sender: FDA-Public Use
  Company Number: US-000008

PATIENT
  Sex: Male
  Weight: 87.9978 kg

DRUGS (1)
  1. KUVAN [Suspect]
     Indication: PHENYLKETONURIA
     Dosage: 100 MG 17X/DAY ORAL
     Route: 048
     Dates: start: 20090603

REACTIONS (11)
  - CHILLS [None]
  - COUGH [None]
  - DIZZINESS [None]
  - NIGHT SWEATS [None]
  - OCULAR HYPERAEMIA [None]
  - PHARYNGEAL OEDEMA [None]
  - PYREXIA [None]
  - THROAT IRRITATION [None]
  - VIRAL INFECTION [None]
  - VISUAL IMPAIRMENT [None]
  - WEIGHT INCREASED [None]
